FAERS Safety Report 4366038-8 (Version None)
Quarter: 2004Q2

REPORT INFORMATION
  Report Type: 
  Country: None (occurrence: None)
  Receive Date: 20040526
  Receipt Date: 20040526
  Transmission Date: 20050107
  Serious: Yes (Life-Threatening, Hospitalization)
  Sender: FDA-Public Use
  Company Number: None

PATIENT
  Age: 67 Year
  Sex: Female
  Weight: 70.3075 kg

DRUGS (7)
  1. REOPRO [Suspect]
     Indication: CORONARY ANGIOPLASTY
     Dates: start: 20031016
  2. REOPRO [Suspect]
     Indication: CORONARY ARTERIAL STENT INSERTION
     Dates: start: 20031016
  3. ANGIOMAX [Concomitant]
  4. PLAVIX [Concomitant]
  5. MORPHINE [Concomitant]
  6. VERSED [Concomitant]
  7. NITROGLYCERIN [Concomitant]

REACTIONS (1)
  - PULMONARY ALVEOLAR HAEMORRHAGE [None]
